FAERS Safety Report 6006662-X (Version None)
Quarter: 2008Q4

REPORT INFORMATION
  Report Type: 
  Country: None (occurrence: None)
  Receive Date: 20081217
  Receipt Date: 20081204
  Transmission Date: 20090506
  Serious: Yes (Hospitalization)
  Sender: FDA-Public Use
  Company Number: MX-ELI_LILLY_AND_COMPANY-MX200810004380

PATIENT
  Age: 58 Year
  Sex: Male

DRUGS (3)
  1. CIALIS [Suspect]
     Dosage: UNK UNK, OTHER
     Route: 065
     Dates: start: 20080701
  2. CIALIS [Suspect]
     Dosage: 20 MG, WEEKLY (1/W)
     Route: 048
     Dates: start: 20081127
  3. VITAMINS [Concomitant]
     Dosage: UNK, UNKNOWN
     Route: 065

REACTIONS (2)
  - HYPERTENSIVE CRISIS [None]
  - TACHYCARDIA [None]
